FAERS Safety Report 7794668-X (Version None)
Quarter: 2011Q4

REPORT INFORMATION
  Report Type: 
  Country: None (occurrence: None)
  Receive Date: 20111003
  Receipt Date: 20111003
  Transmission Date: 20120403
  Serious: Yes (Hospitalization)
  Sender: FDA-Public Use
  Company Number: None

PATIENT
  Sex: Female
  Weight: 88.9 kg

DRUGS (12)
  1. CALCIUM CARBONATE-VITAMIN D [Concomitant]
  2. CARBOPLATIN [Suspect]
     Dosage: 519 MG
     Dates: end: 20110812
  3. ATIVAN [Concomitant]
  4. OMEGA-3 FATTY ACIDS [Concomitant]
  5. PRILOSEC [Concomitant]
  6. ASCORBIC ACID [Concomitant]
  7. COMBIGAN OPTHALMIC SOLN [Concomitant]
  8. TAXOL [Suspect]
     Dosage: 160 MG
     Dates: end: 20110812
  9. GLUCOSAMINE-CHONDROINTIN [Concomitant]
  10. XALATAN OPTHAMIC SOLN [Concomitant]
  11. MULTIPLE VITAMIN [Concomitant]
  12. ZOFRAN [Concomitant]

REACTIONS (8)
  - HUMERUS FRACTURE [None]
  - HAEMATEMESIS [None]
  - NAUSEA [None]
  - MALLORY-WEISS SYNDROME [None]
  - HAEMOGLOBIN DECREASED [None]
  - OESOPHAGITIS [None]
  - VOMITING [None]
  - FALL [None]
